FAERS Safety Report 10896359 (Version 2)
Quarter: 2015Q3

REPORT INFORMATION
  Report Type: Spontaneous
  Country: IT (occurrence: IT)
  Receive Date: 20150309
  Receipt Date: 20150721
  Transmission Date: 20151125
  Serious: Yes (Other)
  Sender: FDA-Public Use
  Company Number: IT-ACCORD-029049

PATIENT
  Age: 22 Year
  Sex: Female

DRUGS (2)
  1. QUETIAPINE [Suspect]
     Active Substance: QUETIAPINE
     Indication: PRODUCT USED FOR UNKNOWN INDICATION
     Route: 048
     Dates: start: 20140925, end: 20140925
  2. FLURAZEPAM [Suspect]
     Active Substance: FLURAZEPAM\FLURAZEPAM HYDROCHLORIDE
     Indication: PRODUCT USED FOR UNKNOWN INDICATION
     Route: 048
     Dates: start: 20140925, end: 20140925

REACTIONS (4)
  - Sopor [Unknown]
  - Electrocardiogram QT prolonged [Unknown]
  - Mydriasis [Unknown]
  - Drug abuse [Unknown]

NARRATIVE: CASE EVENT DATE: 20140925
